FAERS Safety Report 8933369 (Version 1)
Quarter: 2012Q4

REPORT INFORMATION
  Report Type: 
  Country: HU (occurrence: GB)
  Receive Date: 20121128
  Receipt Date: 20121128
  Transmission Date: 20130627
  Serious: Yes (Hospitalization, Other)
  Sender: FDA-Public Use
  Company Number: NL-WATSON-2012-20746

PATIENT
  Age: 67 Year
  Sex: Male

DRUGS (15)
  1. TAMSULOSIN HYDROCHLORIDE (UNKNOWN) [Suspect]
     Indication: PROSTATIC DISORDER
     Dosage: 4 mg, daily
     Route: 048
     Dates: start: 20120206, end: 20120502
  2. DOXORUBICIN [Suspect]
     Indication: PRODUCT USED FOR UNKNOWN INDICATION
     Dosage: 106 mg, daily
     Route: 042
     Dates: start: 20120516
  3. ATORVASTATIN (UNKNOWN) [Suspect]
     Indication: HYPERCHOLESTEROLAEMIA
     Dosage: 10 mg, daily
     Route: 048
     Dates: start: 20080318, end: 20120522
  4. FUROSEMIDE (UNKNOWN) [Suspect]
     Indication: HYPERTENSION
     Dosage: 40 mg, daily
     Route: 048
     Dates: start: 20120210, end: 20120522
  5. METOPROLOL TARTRATE [Suspect]
     Indication: HYPERTENSION
     Dosage: 50 mg, daily
     Route: 048
     Dates: start: 20120223
  6. PREDNISOLONE (UNKNOWN) [Suspect]
     Indication: MALIGNANT LYMPHOID NEOPLASM
     Dosage: 100 mg, daily
     Route: 048
     Dates: start: 20120516
  7. OXYCODONE [Suspect]
     Indication: PAIN
     Dosage: 20 mg, daily
     Route: 048
     Dates: start: 20120223, end: 20120522
  8. VINCRISTINE [Suspect]
     Indication: MALIGNANT LYMPHOID NEOPLASM
     Dosage: 2 mg, daily
     Route: 042
     Dates: start: 20120516
  9. G-CSF [Suspect]
     Indication: MALIGNANT LYMPHOID NEOPLASM
     Dosage: 6 mg, daily
     Route: 058
     Dates: start: 20120517
  10. LIPOSOMAL DOXORUBICIN HYDROCHLORIDE [Suspect]
     Indication: PRODUCT USED FOR UNKNOWN INDICATION
     Dosage: 106 mg, unknown
     Route: 042
     Dates: start: 20120516
  11. FRAGMIN [Suspect]
     Indication: DEEP VEIN THROMBOSIS
     Dosage: 180 units daily
     Route: 058
     Dates: start: 20120212, end: 20120222
  12. RITUXIMAB [Suspect]
     Indication: PRODUCT USED FOR UNKNOWN INDICATION
     Dosage: 750 mg, daily
     Route: 042
     Dates: start: 20120516
  13. EXFORGE [Suspect]
     Indication: HYPERTENSION
     Dosage: 5/80 mg unknown
     Route: 048
     Dates: start: 20120209, end: 20120522
  14. POLYETHYLENE GLYCOL [Suspect]
     Indication: CONSTIPATION
     Dosage: 10 g, daily
     Route: 048
     Dates: start: 20120209, end: 20120522
  15. CYCLOPHOSPHAMIDE [Suspect]
     Indication: PRODUCT USED FOR UNKNOWN INDICATION
     Dosage: 1500 mg, UNK
     Route: 042
     Dates: start: 20120516

REACTIONS (1)
  - Dyspnoea [Recovered/Resolved]
